FAERS Safety Report 6377499-7 (Version None)
Quarter: 2009Q3

REPORT INFORMATION
  Report Type: 
  Country: None (occurrence: None)
  Receive Date: 20090923
  Receipt Date: 20090923
  Transmission Date: 20100115
  Serious: Yes (Hospitalization)
  Sender: FDA-Public Use
  Company Number: None

PATIENT
  Age: 74 Year
  Sex: Female
  Weight: 68 kg

DRUGS (20)
  1. LANTUS [Suspect]
     Indication: TYPE 1 DIABETES MELLITUS
     Dosage: 10U SQ QHS
     Route: 058
  2. NOVOLOG [Suspect]
     Dosage: 10U SQ TID
     Route: 058
  3. AMIODARONE HCL [Concomitant]
  4. LEVOTHYROXINE SODIUM [Concomitant]
  5. LISINOPRIL [Concomitant]
  6. APAP TAB [Concomitant]
  7. METOPROLOL TARTRATE [Concomitant]
  8. OXYCODONE HCL [Concomitant]
  9. SERTRALINE HCL [Concomitant]
  10. SEVELAMER [Concomitant]
  11. ATORVASTATIN [Concomitant]
  12. CINACALCET [Concomitant]
  13. LANTUS [Concomitant]
  14. INSULIN ASPART [Concomitant]
  15. DOCUSATE [Concomitant]
  16. BISACODYL [Concomitant]
  17. PHENYTOIN [Concomitant]
  18. ZOLPIDEM [Concomitant]
  19. LIDODERM [Concomitant]
  20. DIPHENHYDRAMINE HCL [Concomitant]

REACTIONS (5)
  - BLOOD GLUCOSE DECREASED [None]
  - BLOOD GLUCOSE INCREASED [None]
  - BLOOD POTASSIUM INCREASED [None]
  - MENTAL STATUS CHANGES [None]
  - MUSCULOSKELETAL PAIN [None]
